FAERS Safety Report 14036460 (Version 1)
Quarter: 2017Q4

REPORT INFORMATION
  Report Type: Spontaneous
  Country: US (occurrence: US)
  Receive Date: 20171003
  Receipt Date: 20171003
  Transmission Date: 20180321
  Serious: No
  Sender: FDA-Public Use
  Company Number: US-ROCHE-1918490

PATIENT
  Age: 79 Year
  Sex: Female

DRUGS (1)
  1. CATHFLO ACTIVASE [Suspect]
     Active Substance: ALTEPLASE
     Indication: SPLENIC ABSCESS
     Dosage: 2 MG OF ALTEPLASE (CATHFLO ACTIVASE) IN 20 ML NORMAL SALINE SOLUTION
     Route: 050

REACTIONS (2)
  - No adverse event [Unknown]
  - Drug ineffective [Unknown]
